FAERS Safety Report 5713578-2 (Version None)
Quarter: 2008Q2

REPORT INFORMATION
  Report Type: 
  Country: None (occurrence: None)
  Receive Date: 20080422
  Receipt Date: 20080410
  Transmission Date: 20081010
  Serious: Yes (Other)
  Sender: FDA-Public Use
  Company Number: US-PFIZER INC-2008033686

PATIENT
  Sex: Male
  Weight: 86.4 kg

DRUGS (10)
  1. CHANTIX [Suspect]
     Indication: SMOKING CESSATION THERAPY
     Route: 048
     Dates: start: 20080401, end: 20080410
  2. LOVASTATIN [Concomitant]
  3. OMEPRAZOLE [Concomitant]
  4. TOPAMAX [Concomitant]
  5. METOPROLOL TARTRATE [Concomitant]
  6. NIFEDIPINE [Concomitant]
  7. NIACIN [Concomitant]
  8. HYDROCODONE BITARTRATE [Concomitant]
  9. NAPROXEN [Concomitant]
  10. ACETYLSALICYLIC ACID SRT [Concomitant]

REACTIONS (1)
  - URINARY INCONTINENCE [None]
